FAERS Safety Report 8391518-8 (Version None)
Quarter: 2012Q1

REPORT INFORMATION
  Report Type: 
  Country: None (occurrence: None)
  Receive Date: 20120323
  Receipt Date: 20110714
  Transmission Date: 20120608
  Serious: Yes (Hospitalization, Other)
  Sender: FDA-Public Use
  Company Number: 163-21880-11042085

PATIENT
  Age: 79 Year
  Sex: Male
  Weight: 69.8539 kg

DRUGS (6)
  1. DEXAMETHASONE [Concomitant]
  2. AMINO ACI D (ORNITHINE) (CAPSULES) [Concomitant]
  3. HYDROMORPHONE HCL [Concomitant]
  4. PROBIOTIC (LACTOBACILLUS REUTERI) (CAPSULES) [Concomitant]
  5. REVLIMID [Suspect]
     Indication: MULTIPLE MYELOMA
     Dosage: 25 MG, 1 IN 1 D, PO
     Route: 048
     Dates: start: 20100701, end: 20100101
  6. MULTIVITAMIN (MULTIVITAMINS) (UNKNOWN) [Concomitant]

REACTIONS (4)
  - WEIGHT DECREASED [None]
  - INFECTION [None]
  - ASTHENIA [None]
  - DECREASED APPETITE [None]
